FAERS Safety Report 5899948-0 (Version None)
Quarter: 2008Q3

REPORT INFORMATION
  Report Type: 
  Country: None (occurrence: None)
  Receive Date: 20080926
  Receipt Date: 20080919
  Transmission Date: 20090109
  Serious: Yes (Other)
  Sender: FDA-Public Use
  Company Number: A0749340A

PATIENT
  Age: 70 Year
  Sex: Female
  Weight: 68.2 kg

DRUGS (5)
  1. AVANDIA [Suspect]
     Indication: DIABETES MELLITUS
     Dosage: 8MG PER DAY
     Route: 048
     Dates: start: 20030101, end: 20060101
  2. METFORMIN HCL [Concomitant]
  3. ACTOS [Concomitant]
  4. LIPITOR [Concomitant]
  5. ALLOPURINOL [Concomitant]

REACTIONS (3)
  - CARDIAC FAILURE CONGESTIVE [None]
  - HEART INJURY [None]
  - MYOCARDIAL INFARCTION [None]
